FAERS Safety Report 7339557-X (Version None)
Quarter: 2011Q1

REPORT INFORMATION
  Report Type: 
  Country: None (occurrence: None)
  Receive Date: 20110308
  Receipt Date: 20110221
  Transmission Date: 20110831
  Serious: No
  Sender: FDA-Public Use
  Company Number: US-AMGEN-USASP2011006233

PATIENT
  Age: 78 Year
  Sex: Female
  Weight: 81.633 kg

DRUGS (1)
  1. PROLIA [Suspect]
     Indication: OSTEOPOROSIS POSTMENOPAUSAL
     Dosage: 60 MG, Q6MO
     Route: 058
     Dates: start: 20100914, end: 20110203

REACTIONS (2)
  - ADVERSE DRUG REACTION [None]
  - DYSPHAGIA [None]
